FAERS Safety Report 6692322-9 (Version None)
Quarter: 2010Q2

REPORT INFORMATION
  Report Type: 
  Country: None (occurrence: None)
  Receive Date: 20100422
  Receipt Date: 20100412
  Transmission Date: 20101027
  Serious: Yes (Hospitalization, Other)
  Sender: FDA-Public Use
  Company Number: US-ABBOTT-10P-163-0627213-00

PATIENT
  Sex: Female
  Weight: 47.67 kg

DRUGS (7)
  1. HUMIRA [Suspect]
     Indication: CROHN'S DISEASE
     Dates: start: 20090301, end: 20090301
  2. HUMIRA [Suspect]
     Route: 058
     Dates: start: 20090101, end: 20100101
  3. PROZAC [Concomitant]
     Indication: DEPRESSION
  4. PROZAC [Concomitant]
     Indication: ANXIETY
  5. LIALDA [Concomitant]
     Indication: CROHN'S DISEASE
  6. ASACOL [Concomitant]
     Indication: CROHN'S DISEASE
  7. VITAMINS [Concomitant]
     Indication: VITAMIN SUPPLEMENTATION

REACTIONS (10)
  - ABDOMINAL PAIN [None]
  - ASTHENIA [None]
  - COLON NEOPLASM [None]
  - CROHN'S DISEASE [None]
  - DYSPNOEA [None]
  - FISTULA DISCHARGE [None]
  - INCISION SITE INFECTION [None]
  - MUSCLE SPASMS [None]
  - WEIGHT DECREASED [None]
  - WOUND INFECTION STAPHYLOCOCCAL [None]
